FAERS Safety Report 5370982-2 (Version None)
Quarter: 2007Q2

REPORT INFORMATION
  Report Type: 
  Country: None (occurrence: None)
  Receive Date: 20070626
  Receipt Date: 20070614
  Transmission Date: 20071010
  Serious: Yes (Other)
  Sender: FDA-Public Use
  Company Number: AR-PFIZER INC-2007043453

PATIENT
  Sex: Male
  Weight: 80 kg

DRUGS (3)
  1. SUTENT [Suspect]
     Indication: RENAL CELL CARCINOMA STAGE UNSPECIFIED
     Route: 048
  2. GABAPENTIN [Concomitant]
     Route: 048
  3. MEPREDNISONE [Concomitant]
     Route: 048

REACTIONS (4)
  - ANAEMIA MACROCYTIC [None]
  - HYPERTENSION [None]
  - LYMPHOCYTOSIS [None]
  - PALMAR-PLANTAR ERYTHRODYSAESTHESIA SYNDROME [None]
